FAERS Safety Report 23171846 (Version 1)
Quarter: 2023Q4

REPORT INFORMATION
  Report Type: Spontaneous
  Country: HR (occurrence: HR)
  Receive Date: 20231110
  Receipt Date: 20231110
  Transmission Date: 20240110
  Serious: Yes (Other)
  Sender: FDA-Public Use
  Company Number: None

PATIENT
  Age: 43 Year
  Sex: Male
  Weight: 95 kg

DRUGS (1)
  1. IBUPROFEN [Suspect]
     Active Substance: IBUPROFEN
     Indication: Toothache
     Dosage: 400 MILLIGRAM PRN (AS NEEDED 2-3X1)
     Route: 048
     Dates: start: 20231012, end: 20231012

REACTIONS (4)
  - Peripheral swelling [Recovering/Resolving]
  - Suffocation feeling [Recovering/Resolving]
  - Pharyngeal paraesthesia [Recovering/Resolving]
  - Urticaria [Recovering/Resolving]

NARRATIVE: CASE EVENT DATE: 20231012
